FAERS Safety Report 5507380-4 (Version None)
Quarter: 2007Q4

REPORT INFORMATION
  Report Type: 
  Country: None (occurrence: None)
  Receive Date: 20071106
  Receipt Date: 20071026
  Transmission Date: 20080405
  Serious: Yes (Life-Threatening)
  Sender: FDA-Public Use
  Company Number: JP-JNJFOC-20071007050

PATIENT
  Age: 4 Decade
  Sex: Male

DRUGS (7)
  1. REMICADE [Suspect]
     Route: 042
  2. REMICADE [Suspect]
     Route: 042
  3. REMICADE [Suspect]
     Route: 042
  4. REMICADE [Suspect]
     Route: 042
  5. REMICADE [Suspect]
     Indication: CROHN'S DISEASE
     Route: 042
  6. PENTASA [Concomitant]
     Indication: CROHN'S DISEASE
  7. IMURAN [Concomitant]
     Indication: CROHN'S DISEASE

REACTIONS (2)
  - ANAPHYLACTOID REACTION [None]
  - LOSS OF CONSCIOUSNESS [None]
